FAERS Safety Report 6375663-4 (Version None)
Quarter: 2009Q3

REPORT INFORMATION
  Report Type: 
  Country: None (occurrence: None)
  Receive Date: 20090918
  Receipt Date: 20090918
  Transmission Date: 20100115
  Serious: Yes (Other)
  Sender: FDA-Public Use
  Company Number: None

PATIENT
  Age: 54 Year
  Sex: Male

DRUGS (1)
  1. HUMIRA [Suspect]
     Indication: CROHN'S DISEASE
     Dosage: 40MG EVERY 2 WEEKS SQ
     Route: 058
     Dates: start: 20090714, end: 20090821

REACTIONS (3)
  - DYSPNOEA [None]
  - INSOMNIA [None]
  - PALPITATIONS [None]
